FAERS Safety Report 24165291 (Version 1)
Quarter: 2024Q3

REPORT INFORMATION
  Report Type: Spontaneous
  Country: GB (occurrence: GB)
  Receive Date: 20240802
  Receipt Date: 20240802
  Transmission Date: 20241016
  Serious: Yes (Hospitalization)
  Sender: BAXTER
  Company Number: None

PATIENT
  Age: 87 Year
  Sex: Female

DRUGS (14)
  1. FUROSEMIDE [Suspect]
     Active Substance: FUROSEMIDE
     Dosage: (DOSAGE TEXT: 20 MG ONCE A DAY AS REQUIRED)
     Route: 065
     Dates: start: 20240605
  2. SOLIFENACIN [Concomitant]
     Active Substance: SOLIFENACIN
     Dosage: 5 MG, ONCE DAILY
     Route: 065
  3. TIOTROPIUM [Concomitant]
     Active Substance: TIOTROPIUM
     Dosage: 2 DOSAGE FORMS, ONCE DAILY (DOSAGE TEXT: 2.5 MICROGRAMS / DOSE INHALATION SOLUTION CARTRIDGE CFC FRE
     Route: 065
  4. CALCIUM CARBONATE\CHOLECALCIFEROL [Concomitant]
     Active Substance: CALCIUM CARBONATE\CHOLECALCIFEROL
     Dosage: 2 DOSAGE FORM, TWICE DAILY (DOSAGE TEXT: 750 MG / 200 UNIT CAPLETS)
     Route: 065
  5. SENNA [Concomitant]
     Active Substance: SENNA LEAF\SENNOSIDES\SENNOSIDES A AND B
     Dosage: 15 MG, ONCE DAILY (DOSAGE TEXT: 7.5MG. 2 AT NIGHT)
     Route: 065
  6. SIMVASTATIN [Concomitant]
     Active Substance: SIMVASTATIN
     Dosage: 40 MG, ONCE DAILY (DOSAGE TEXT: AT NIGHT)
     Route: 065
  7. RAMIPRIL [Concomitant]
     Active Substance: RAMIPRIL
     Dosage: 2.5 MG, ONCE DAILY
     Route: 065
  8. ALBUTEROL [Concomitant]
     Active Substance: ALBUTEROL
     Dosage: UNK
     Route: 065
  9. ALBUTEROL [Concomitant]
     Active Substance: ALBUTEROL
     Dosage: (DOSAGE TEXT: 2.5 MG / 2.5 ML NEBULISER LIQUID UNIT DOSE VIALS ONE DOSE TO BE INHALED FOUR TIMES A D
     Route: 065
  10. LORAZEPAM [Concomitant]
     Active Substance: LORAZEPAM
     Dosage: (DOSAGE TEXT: 1 MG TABLETS HALF A TABLET TO ONE TO BE TAKEN AT NIGHT WHEN REQUIRED)
     Route: 065
  11. BUDESONIDE\FORMOTEROL [Concomitant]
     Active Substance: BUDESONIDE\FORMOTEROL
     Dosage: 2 DOSAGE FORM 2 DAYS (DOSAGE TEXT: 160 MICROGRAMS / DOSE / 4.5 MICROGRAMS / DOSE DRY POWDER INHALER)
     Route: 065
  12. IBANDRONIC ACID [Concomitant]
     Active Substance: IBANDRONIC ACID
     Dosage: 150 MG IN 1 MONTH (DOSAGE TEXT: ONE TO BE TAKEN EACH MONTH 1 HOUR BEFORE BREAKFAST)
     Route: 065
  13. DERMOL [Concomitant]
     Active Substance: BENZALKONIUM CHLORIDE\CHLORHEXIDINE HYDROCHLORIDE\ISOPROPYL MYRISTATE\PARAFFIN
     Dosage: (DOSAGE TEXT: 200 SHOWER EMOLLIENT APPLY TO THE SKIN OR USE AS A SOAP SUBSTITUTE)
     Route: 065
  14. DOCUSATE [Concomitant]
     Active Substance: DOCUSATE
     Dosage: 100 MG, TWICE DAILY (DOSAGE TEXT: MORNING AND NIGHT)
     Route: 065

REACTIONS (2)
  - Fall [Unknown]
  - Vomiting [Unknown]
